FAERS Safety Report 25244787 (Version 1)
Quarter: 2025Q2

REPORT INFORMATION
  Report Type: Spontaneous
  Country: US (occurrence: US)
  Receive Date: 20250428
  Receipt Date: 20250428
  Transmission Date: 20250717
  Serious: No
  Sender: AMGEN
  Company Number: US-AMGEN-USASP2025079833

PATIENT
  Age: 83 Year
  Sex: Female

DRUGS (3)
  1. REPATHA [Suspect]
     Active Substance: EVOLOCUMAB
     Indication: Blood cholesterol increased
     Dosage: 140 MILLIGRAM, Q2WK
     Route: 065
     Dates: start: 20250306
  2. HIPREX [Concomitant]
     Active Substance: METHENAMINE HIPPURATE
     Indication: Bladder disorder
     Route: 065
  3. ELIQUIS [Concomitant]
     Active Substance: APIXABAN

REACTIONS (4)
  - Dysuria [Unknown]
  - Pollakiuria [Unknown]
  - Micturition urgency [Unknown]
  - Inappropriate schedule of product administration [Unknown]

NARRATIVE: CASE EVENT DATE: 20250101
